FAERS Safety Report 4744143-1 (Version None)
Quarter: 2005Q3

REPORT INFORMATION
  Report Type: 
  Country: None (occurrence: None)
  Receive Date: 20050809
  Receipt Date: 20050729
  Transmission Date: 20060218
  Serious: Yes (Hospitalization)
  Sender: FDA-Public Use
  Company Number: 195967

PATIENT
  Age: 53 Year
  Sex: Female
  Weight: 95.2554 kg

DRUGS (3)
  1. AVONEX [Suspect]
     Indication: MULTIPLE SCLEROSIS
     Dosage: 30 UG; QW; IM
     Route: 030
     Dates: start: 20020101
  2. XANAX [Concomitant]
  3. VITAMIN (NOS) [Concomitant]

REACTIONS (9)
  - BLOOD PRESSURE INCREASED [None]
  - FALL [None]
  - HEAD INJURY [None]
  - INJECTION SITE PAIN [None]
  - LACERATION [None]
  - MEMORY IMPAIRMENT [None]
  - MULTIPLE SCLEROSIS [None]
  - STRESS [None]
  - WEIGHT INCREASED [None]
